FAERS Safety Report 16917476 (Version 1)
Quarter: 2019Q4

REPORT INFORMATION
  Report Type: Spontaneous
  Country: CA (occurrence: CA)
  Receive Date: 20191015
  Receipt Date: 20191015
  Transmission Date: 20200122
  Serious: Yes (Other)
  Sender: FDA-Public Use
  Company Number: CA-TEVA-2019-CA-1121080

PATIENT
  Age: 59 Year
  Sex: Female
  Weight: 98 kg

DRUGS (5)
  1. DEXAMETHASONE. [Concomitant]
     Active Substance: DEXAMETHASONE
  2. CARBOPLATIN. [Suspect]
     Active Substance: CARBOPLATIN
     Indication: OVARIAN CANCER
     Dosage: 750 MG, 1 EVERY 3 WEEK, SOLUTION INTRAVENOUS
     Route: 042
  3. RANITIDINE. [Concomitant]
     Active Substance: RANITIDINE
  4. BENADRYL [Concomitant]
     Active Substance: DIPHENHYDRAMINE HYDROCHLORIDE
  5. PACLITAXEL. [Concomitant]
     Active Substance: PACLITAXEL

REACTIONS (2)
  - Pruritus [Recovered/Resolved]
  - Flushing [Recovered/Resolved]
